FAERS Safety Report 25982397 (Version 1)
Quarter: 2025Q4

REPORT INFORMATION
  Report Type: Report from Study
  Country: US (occurrence: US)
  Receive Date: 20251031
  Receipt Date: 20251031
  Transmission Date: 20260117
  Serious: Yes (Other)
  Sender: DECIPHERA PHARMACEUTICALS
  Company Number: US-DECIPHERA PHARMACEUTICALS LLC-2025US001357

PATIENT
  Age: 51 Year
  Sex: Male

DRUGS (2)
  1. QINLOCK [Suspect]
     Active Substance: RIPRETINIB
     Indication: Malignant connective tissue neoplasm
     Dosage: 150 MILLIGRAM, QD (50 MG, TAKE 3 TABLETS)
     Dates: start: 20241213
  2. QINLOCK [Suspect]
     Active Substance: RIPRETINIB
     Indication: Neoplasm malignant

REACTIONS (1)
  - Malignant neoplasm progression [Unknown]
